FAERS Safety Report 13749445 (Version 1)
Quarter: 2017Q3

REPORT INFORMATION
  Report Type: Report from Study
  Country: BR (occurrence: BR)
  Receive Date: 20170713
  Receipt Date: 20170713
  Transmission Date: 20171127
  Serious: Yes (Other)
  Sender: FDA-Public Use
  Company Number: PHHY2017BR044205

PATIENT
  Sex: Male
  Weight: 62 kg

DRUGS (3)
  1. SANDOSTATIN LAR DEPOT [Suspect]
     Active Substance: OCTREOTIDE ACETATE
     Indication: NEUROENDOCRINE TUMOUR
     Dosage: 30 MG, QMO
     Route: 030
     Dates: start: 201612
  2. XELODA [Concomitant]
     Active Substance: CAPECITABINE
     Indication: GASTROINTESTINAL CARCINOMA
     Route: 065
  3. SANDOSTATIN LAR DEPOT [Suspect]
     Active Substance: OCTREOTIDE ACETATE
     Dosage: DELAYED THE MEDICATION
     Route: 030

REACTIONS (9)
  - Thrombosis [Unknown]
  - Paraesthesia [Unknown]
  - Dry skin [Unknown]
  - Peripheral swelling [Recovering/Resolving]
  - Inappropriate schedule of drug administration [Unknown]
  - Weight decreased [Unknown]
  - Hypoaesthesia [Unknown]
  - Skin hypertrophy [Unknown]
  - Limb discomfort [Unknown]
